FAERS Safety Report 9523009 (Version 2)
Quarter: 2013Q3

REPORT INFORMATION
  Report Type: Spontaneous
  Country: JP (occurrence: JP)
  Receive Date: 20130913
  Receipt Date: 20130913
  Transmission Date: 20140515
  Serious: Yes (Disabling, Other)
  Sender: FDA-Public Use
  Company Number: JP-BAYER-2012-046526

PATIENT
  Age: 70 Year
  Sex: Male
  Weight: 46 kg

DRUGS (8)
  1. NEXAVAR [Suspect]
     Indication: HEPATOCELLULAR CARCINOMA
     Dosage: 400 MG, BID
     Route: 048
     Dates: start: 20120426, end: 20120502
  2. NEXAVAR [Suspect]
     Indication: HEPATOCELLULAR CARCINOMA
     Dosage: DAILY DOSE 400 MG
     Route: 048
     Dates: start: 20120514
  3. NEXAVAR [Suspect]
     Indication: HEPATOCELLULAR CARCINOMA
     Dosage: 400 MG, QOD
     Route: 048
     Dates: start: 201308
  4. DIOVAN [Concomitant]
     Dosage: DAILY DOSE 80 MG
     Route: 048
  5. CALCIUM CHANNEL BLOCKERS [Concomitant]
     Dosage: UNK
  6. RADEN [Concomitant]
     Dosage: DAILY DOSE 300 MG
     Route: 048
  7. ALLORIN [Concomitant]
     Dosage: DAILY DOSE 100 MG
     Route: 048
  8. NIFEDIPINE [Concomitant]
     Dosage: DAILY DOSE 40 MG
     Route: 048
     Dates: start: 20120322

REACTIONS (4)
  - Hypertension [Recovered/Resolved]
  - Cerebral infarction [Recovered/Resolved with Sequelae]
  - Amylase increased [Recovered/Resolved]
  - Palmar-plantar erythrodysaesthesia syndrome [Recovering/Resolving]
